FAERS Safety Report 24138333 (Version 1)
Quarter: 2024Q3

REPORT INFORMATION
  Report Type: Spontaneous
  Country: NL (occurrence: NL)
  Receive Date: 20240725
  Receipt Date: 20240725
  Transmission Date: 20241017
  Serious: Yes (Other)
  Sender: ROCHE
  Company Number: None

PATIENT
  Age: 49 Year
  Sex: Female

DRUGS (6)
  1. OCREVUS [Suspect]
     Active Substance: OCRELIZUMAB
     Indication: Multiple sclerosis
     Dosage: 600 MG A 1 DOSE PER 9 MONTHS
     Route: 065
     Dates: start: 20210928, end: 20240417
  2. LAMOTRIGINE DISPERTABLET  50MG / LAMOTRIGINE MYLAN DISPERS TABLET  50M [Concomitant]
     Dosage: 1X DAAGS 4 ST
  3. METOPROLOL TABLET   50MG / METOPROLOLTARTRAAT CF TABLET  50MG [Concomitant]
     Dosage: 1X DAAGS 1 ST
  4. OLANZAPINE TABLET  5MG / OLANZAPINE SANDOZ TABLET FILMOMHULD  5MG [Concomitant]
     Dosage: 05-07-2023
  5. ENALAPRIL TABLET 10MG / ENALAPRIL MALEAAT MYLAN TABLET 10MG [Concomitant]
     Dosage: 1X DAAGS 1 ST
  6. COLECALCIFEROL CAPSULE   5600IE / COLECALCIFEROL BENFEROL CAPSULE   56 [Concomitant]
     Dosage: 1X PER WEEK (POLIKLINISCH) 1 ST

REACTIONS (2)
  - Malignant melanoma [Unknown]
  - Breast cancer [Unknown]
